FAERS Safety Report 12600706 (Version 3)
Quarter: 2016Q4

REPORT INFORMATION
  Report Type: Spontaneous
  Country: US (occurrence: US)
  Receive Date: 20160727
  Receipt Date: 20161110
  Transmission Date: 20170207
  Serious: Yes (Hospitalization, Other)
  Sender: FDA-Public Use
  Company Number: US-FRI-1000086497

PATIENT
  Age: 68 Year
  Sex: Female
  Weight: 98.88 kg

DRUGS (5)
  1. METFORMIN HCL UNK [Concomitant]
     Active Substance: METFORMIN HYDROCHLORIDE
     Indication: DIABETES MELLITUS
     Dosage: UNK
     Dates: start: 2016
  2. LYRICA [Suspect]
     Active Substance: PREGABALIN
     Dosage: 300 MG, BID
     Route: 048
     Dates: end: 201607
  3. SAVELLA [Suspect]
     Active Substance: MILNACIPRAN HYDROCHLORIDE
     Indication: FIBROMYALGIA
     Dosage: 100 MG, BID
     Route: 048
     Dates: end: 20160712
  4. LYRICA [Suspect]
     Active Substance: PREGABALIN
     Dosage: 75 MG, BID
     Route: 048
  5. LYRICA [Suspect]
     Active Substance: PREGABALIN
     Indication: FIBROMYALGIA
     Dosage: UNK

REACTIONS (10)
  - Pain [Unknown]
  - Fall [Recovered/Resolved]
  - Drug interaction [Recovered/Resolved]
  - Diabetes mellitus [Unknown]
  - Mobility decreased [Recovering/Resolving]
  - Nerve injury [Unknown]
  - Burning sensation [Not Recovered/Not Resolved]
  - Peripheral swelling [Recovering/Resolving]
  - Weight decreased [Unknown]
  - Drug hypersensitivity [Recovered/Resolved]

NARRATIVE: CASE EVENT DATE: 2016
